FAERS Safety Report 4330098-0 (Version None)
Quarter: 2004Q1

REPORT INFORMATION
  Report Type: 
  Country: None (occurrence: None)
  Receive Date: 20040329
  Receipt Date: 20040319
  Transmission Date: 20041129
  Serious: Yes (Hospitalization)
  Sender: FDA-Public Use
  Company Number: 200410862GDS

PATIENT
  Age: 46 Year
  Sex: Female

DRUGS (7)
  1. NIFEDIPINE [Suspect]
     Indication: ARTERIOSPASM CORONARY
     Dosage: SEE IMAGE
     Route: 048
  2. ISOSORBIDE DINITRATE [Concomitant]
  3. DILTIAZEM [Concomitant]
  4. AMLODIPINE [Concomitant]
  5. NICORANDIL [Concomitant]
  6. ISOSORBIDE MONONITRATE [Concomitant]
  7. PREDNISOLONE [Concomitant]

REACTIONS (5)
  - ARTERIOSPASM CORONARY [None]
  - ELECTROCARDIOGRAM ST SEGMENT ELEVATION [None]
  - PRINZMETAL ANGINA [None]
  - SYNCOPE [None]
  - URINARY INCONTINENCE [None]
